FAERS Safety Report 17750183 (Version 1)
Quarter: 2020Q2

REPORT INFORMATION
  Report Type: Spontaneous
  Country: US (occurrence: US)
  Receive Date: 20200505
  Receipt Date: 20200505
  Transmission Date: 20200714
  Serious: Yes (Hospitalization)
  Sender: FDA-Public Use
  Company Number: None

PATIENT
  Sex: Male

DRUGS (30)
  1. AMITRIPTLYN [Concomitant]
  2. DUREZOL [Concomitant]
     Active Substance: DIFLUPREDNATE
  3. LEVEMIR [Concomitant]
     Active Substance: INSULIN DETEMIR
  4. OXYBUTYNIN. [Concomitant]
     Active Substance: OXYBUTYNIN CHLORIDE
  5. OXYCODONE AND ACETAMINOPHEN [Concomitant]
     Active Substance: ACETAMINOPHEN\OXYCODONE HYDROCHLORIDE
  6. VENTOLIN HFA [Concomitant]
     Active Substance: ALBUTEROL SULFATE
  7. FLUCONAZOLE. [Concomitant]
     Active Substance: FLUCONAZOLE
  8. INCRUSE ELLIPTA [Concomitant]
     Active Substance: UMECLIDINIUM BROMIDE
  9. IPRATROPIUM/SOL ALBUTER [Concomitant]
  10. TRAZODONE [Concomitant]
     Active Substance: TRAZODONE HYDROCHLORIDE
  11. ALBUTEROL NEB [Concomitant]
     Active Substance: ALBUTEROL
  12. BUSPIRONE [Concomitant]
     Active Substance: BUSPIRONE HYDROCHLORIDE
  13. GABAPENTIN. [Concomitant]
     Active Substance: GABAPENTIN
  14. OXYCONTIN [Concomitant]
     Active Substance: OXYCODONE HYDROCHLORIDE
  15. PREDNISONE. [Concomitant]
     Active Substance: PREDNISONE
  16. ALPRAZOLAM. [Concomitant]
     Active Substance: ALPRAZOLAM
  17. CEPHALEXIN. [Concomitant]
     Active Substance: CEPHALEXIN
  18. DOXYCYCL HYC [Concomitant]
  19. ILEVRO DRO [Concomitant]
  20. NARCAN [Concomitant]
     Active Substance: NALOXONE HYDROCHLORIDE
  21. MORPHINE SUL [Concomitant]
     Active Substance: MORPHINE SULFATE
  22. SYMBICORT [Concomitant]
     Active Substance: BUDESONIDE\FORMOTEROL FUMARATE DIHYDRATE
  23. AMOX/K CLAV [Concomitant]
     Active Substance: AMOXICILLIN\CLAVULANATE POTASSIUM
  24. BUDES/FORMOT [Concomitant]
  25. LEVOFLOXACIN. [Concomitant]
     Active Substance: LEVOFLOXACIN
  26. OSELTAMIVIR [Concomitant]
     Active Substance: OSELTAMIVIR
  27. VITAMIN D [Concomitant]
     Active Substance: VITAMIN D NOS
  28. HUMIRA [Suspect]
     Active Substance: ADALIMUMAB
     Indication: RHEUMATOID ARTHRITIS
     Route: 058
     Dates: start: 20190522
  29. ALENDRONATE [Concomitant]
     Active Substance: ALENDRONATE SODIUM
  30. ESOMEPRA MAG [Concomitant]

REACTIONS (1)
  - Dyspnoea [None]
